FAERS Safety Report 11224181 (Version 3)
Quarter: 2015Q3

REPORT INFORMATION
  Report Type: Spontaneous
  Country: US (occurrence: US)
  Receive Date: 20150629
  Receipt Date: 20150716
  Transmission Date: 20151125
  Serious: Yes (Life-Threatening)
  Sender: FDA-Public Use
  Company Number: US-JNJFOC-20150615433

PATIENT
  Sex: Female

DRUGS (1)
  1. EVICEL [Suspect]
     Active Substance: FIBRINOGEN HUMAN\THROMBIN HUMAN
     Indication: HAEMOSTASIS
     Dosage: APPROXIMATELY 8 OR 9 CC ON STAPLE LINE AND 1 OR 2 CC ON LIVER
     Route: 050
     Dates: start: 20150616, end: 20150616

REACTIONS (3)
  - Oxygen saturation decreased [Recovered/Resolved]
  - Air embolism [Recovered/Resolved]
  - Intentional device misuse [Recovered/Resolved]

NARRATIVE: CASE EVENT DATE: 20150616
